FAERS Safety Report 18891063 (Version 2)
Quarter: 2021Q1

REPORT INFORMATION
  Report Type: Report from Study
  Country: PL (occurrence: PL)
  Receive Date: 20210215
  Receipt Date: 20210310
  Transmission Date: 20210420
  Serious: Yes (Death, Other)
  Sender: FDA-Public Use
  Company Number: PL-ROCHE-2662014

PATIENT
  Age: 62 Year
  Sex: Female

DRUGS (4)
  1. ATEZOLIZUMAB. [Suspect]
     Active Substance: ATEZOLIZUMAB
     Indication: NEOPLASM
     Route: 042
     Dates: start: 20200428
  2. ATEZOLIZUMAB. [Suspect]
     Active Substance: ATEZOLIZUMAB
     Indication: TRANSITIONAL CELL CARCINOMA
  3. DERAZANTINIB. [Suspect]
     Active Substance: DERAZANTINIB
     Indication: NEOPLASM
     Route: 048
     Dates: start: 20200428
  4. DERAZANTINIB. [Suspect]
     Active Substance: DERAZANTINIB
     Indication: TRANSITIONAL CELL CARCINOMA

REACTIONS (3)
  - Disease progression [Fatal]
  - Oral fungal infection [Recovered/Resolved]
  - Blood phosphorus increased [Recovered/Resolved]

NARRATIVE: CASE EVENT DATE: 20200519
